FAERS Safety Report 15546817 (Version 1)
Quarter: 2018Q4

REPORT INFORMATION
  Report Type: Spontaneous
  Country: US (occurrence: US)
  Receive Date: 20181024
  Receipt Date: 20181024
  Transmission Date: 20190205
  Serious: Yes (Other)
  Sender: FDA-Public Use
  Company Number: US-DSJP-DSU-2017-147844

PATIENT

DRUGS (2)
  1. BENICAR [Suspect]
     Active Substance: OLMESARTAN MEDOXOMIL
     Indication: PRODUCT USED FOR UNKNOWN INDICATION
     Dosage: 20 MG, QD
     Route: 048
     Dates: start: 20050208, end: 20141118
  2. BENICAR [Suspect]
     Active Substance: OLMESARTAN MEDOXOMIL
     Dosage: 40 MG, QD
     Route: 048
     Dates: start: 20050208, end: 20141118

REACTIONS (6)
  - Sprue-like enteropathy [Recovering/Resolving]
  - Diverticulum intestinal [Not Recovered/Not Resolved]
  - Constipation [Unknown]
  - Large intestine polyp [Recovered/Resolved]
  - Haemorrhoids [Unknown]
  - Diverticulitis [Unknown]

NARRATIVE: CASE EVENT DATE: 20080327
